FAERS Safety Report 16655922 (Version 1)
Quarter: 2019Q3

REPORT INFORMATION
  Report Type: Spontaneous
  Country: US (occurrence: US)
  Receive Date: 20190731
  Receipt Date: 20190731
  Transmission Date: 20191004
  Serious: Yes (Death)
  Sender: FDA-Public Use
  Company Number: None

PATIENT
  Age: 73 Year
  Sex: Female
  Weight: 53.55 kg

DRUGS (22)
  1. ACETAMINOPHEN ES [Concomitant]
  2. GRANISETRON [Concomitant]
     Active Substance: GRANISETRON
  3. HYDROCODONE-APAP [Concomitant]
     Active Substance: ACETAMINOPHEN\HYDROCODONE
  4. TRAZODONE [Concomitant]
     Active Substance: TRAZODONE HYDROCHLORIDE
  5. BENADRYL [Concomitant]
     Active Substance: DIPHENHYDRAMINE HYDROCHLORIDE
  6. CARVEDIOL [Concomitant]
     Active Substance: CARVEDILOL
  7. DEXAMETHASONE. [Concomitant]
     Active Substance: DEXAMETHASONE
  8. CEPHALEXIN. [Concomitant]
     Active Substance: CEPHALEXIN
  9. VITAMIN D [Concomitant]
     Active Substance: VITAMIN D NOS
  10. PROTONIX [Concomitant]
     Active Substance: PANTOPRAZOLE SODIUM
  11. CALTRATE [Concomitant]
     Active Substance: CALCIUM CARBONATE
  12. DOFETILIDE. [Concomitant]
     Active Substance: DOFETILIDE
  13. LASIX [Concomitant]
     Active Substance: FUROSEMIDE
  14. COUMADIN [Concomitant]
     Active Substance: WARFARIN SODIUM
  15. DIGOXIN. [Concomitant]
     Active Substance: DIGOXIN
  16. NORVASC [Concomitant]
     Active Substance: AMLODIPINE BESYLATE
  17. AUGMENTIN [Concomitant]
     Active Substance: AMOXICILLIN\CLAVULANATE POTASSIUM
  18. DECADRON [Concomitant]
     Active Substance: DEXAMETHASONE
  19. IMODIUM [Concomitant]
     Active Substance: LOPERAMIDE HYDROCHLORIDE
  20. SODIUM CHLORIDE. [Concomitant]
     Active Substance: SODIUM CHLORIDE
  21. XPOVIO [Suspect]
     Active Substance: SELINEXOR
     Indication: PLASMA CELL MYELOMA
     Dosage: ?          OTHER FREQUENCY:TWICE A WEEK;?
     Route: 048
     Dates: start: 20190717, end: 20190731
  22. ZOFRAN [Concomitant]
     Active Substance: ONDANSETRON HYDROCHLORIDE

REACTIONS (1)
  - Death [None]

NARRATIVE: CASE EVENT DATE: 20190731
